FAERS Safety Report 18907747 (Version 1)
Quarter: 2021Q1

REPORT INFORMATION
  Report Type: Report from Study
  Country: US (occurrence: US)
  Receive Date: 20210217
  Receipt Date: 20210217
  Transmission Date: 20210420
  Serious: Yes (Hospitalization)
  Sender: FDA-Public Use
  Company Number: US-JNJFOC-20210216375

PATIENT
  Sex: Female
  Weight: 74.6 kg

DRUGS (4)
  1. DARATUMUMAB [Suspect]
     Active Substance: DARATUMUMAB
     Indication: PLASMA CELL MYELOMA
     Route: 042
     Dates: start: 20200814
  2. LENALIDOMIDE [Suspect]
     Active Substance: LENALIDOMIDE
     Indication: PLASMA CELL MYELOMA
     Route: 048
     Dates: start: 20200717
  3. DEXAMETHASONE. [Concomitant]
     Active Substance: DEXAMETHASONE
     Indication: PLASMA CELL MYELOMA
     Route: 065
     Dates: start: 20200717
  4. FLECAINIDE [Concomitant]
     Active Substance: FLECAINIDE

REACTIONS (7)
  - Ventricular arrhythmia [Unknown]
  - Angina pectoris [Unknown]
  - Palpitations [Unknown]
  - Dyspnoea [Unknown]
  - Nausea [Unknown]
  - Localised oedema [Unknown]
  - Dizziness [Unknown]

NARRATIVE: CASE EVENT DATE: 20200818
